FAERS Safety Report 5167587-5 (Version None)
Quarter: 2006Q4

REPORT INFORMATION
  Report Type: 
  Country: None (occurrence: None)
  Receive Date: 20060918
  Receipt Date: 20060328
  Transmission Date: 20070319
  Serious: Yes (Other)
  Sender: FDA-Public Use
  Company Number: NSADSS2002006200

PATIENT
  Age: 37 Year
  Sex: Male
  Weight: 104.3273 kg

DRUGS (8)
  1. TOPAMAX [Suspect]
     Indication: HYPERHIDROSIS
     Dosage: SEE IMAGE
     Route: 048
     Dates: end: 20020114
  2. TOPAMAX [Suspect]
     Indication: HYPERHIDROSIS
     Dosage: SEE IMAGE
     Route: 048
     Dates: start: 20020131, end: 20020201
  3. TOPAMAX [Suspect]
     Indication: HYPERHIDROSIS
     Dosage: SEE IMAGE
     Route: 048
     Dates: start: 20020101
  4. ASPIRIN [Concomitant]
  5. MULTIVITAMIN [Concomitant]
  6. VICODIN [Concomitant]
  7. VALIUM [Concomitant]
  8. HYDROCODONE BITARTRATE [Concomitant]

REACTIONS (12)
  - AMNESIA [None]
  - ANHIDROSIS [None]
  - BODY TEMPERATURE INCREASED [None]
  - CONFUSIONAL STATE [None]
  - CONVULSION [None]
  - EYE DISORDER [None]
  - FEELING JITTERY [None]
  - HEADACHE [None]
  - INSOMNIA [None]
  - PAIN [None]
  - THINKING ABNORMAL [None]
  - WEIGHT DECREASED [None]
